FAERS Safety Report 10183085 (Version 1)
Quarter: 2014Q2

REPORT INFORMATION
  Report Type: Spontaneous
  Country: US (occurrence: US)
  Receive Date: 20140520
  Receipt Date: 20140520
  Transmission Date: 20141212
  Serious: No
  Sender: FDA-Public Use
  Company Number: US-PFIZER INC-2014136488

PATIENT
  Sex: Female

DRUGS (1)
  1. MOTRIN IB [Suspect]
     Indication: TOOTHACHE
     Dosage: 200MG ,2 TABLETS EVERY 4 HOURS
     Route: 048
     Dates: start: 20140307

REACTIONS (3)
  - Product package associated injury [Recovering/Resolving]
  - Laceration [Recovering/Resolving]
  - Product packaging issue [Recovering/Resolving]
